FAERS Safety Report 8393463-0 (Version None)
Quarter: 2012Q2

REPORT INFORMATION
  Report Type: 
  Country: None (occurrence: None)
  Receive Date: 20120529
  Receipt Date: 20120522
  Transmission Date: 20120825
  Serious: Yes (Hospitalization)
  Sender: FDA-Public Use
  Company Number: US-B.I. PHARMACEUTICALS,INC./RIDGEFIELD-2012-BP-10173BP

PATIENT
  Age: 84 Year
  Sex: Female
  Weight: 68.04 kg

DRUGS (1)
  1. PRADAXA [Suspect]
     Indication: ATRIAL FIBRILLATION
     Dates: start: 20120101, end: 20120501

REACTIONS (2)
  - COLITIS [None]
  - LOWER GASTROINTESTINAL HAEMORRHAGE [None]
